FAERS Safety Report 8590837-X (Version None)
Quarter: 2012Q3

REPORT INFORMATION
  Report Type: 
  Country: None (occurrence: None)
  Receive Date: 20120813
  Receipt Date: 20120731
  Transmission Date: 20120928
  Serious: Yes (Death, Hospitalization)
  Sender: FDA-Public Use
  Company Number: FR-FRI-1000037619

PATIENT
  Sex: Female

DRUGS (3)
  1. PREVISCAN [Suspect]
     Route: 048
  2. FOSFOMYCIN [Suspect]
     Indication: CYSTITIS
     Route: 048
     Dates: start: 20120618, end: 20120621
  3. COLCHICINE [Suspect]
     Indication: GOUT
     Dosage: 1 DF
     Route: 048
     Dates: start: 20120618, end: 20120621

REACTIONS (7)
  - RENAL FAILURE ACUTE [None]
  - SHOCK HAEMORRHAGIC [None]
  - DIARRHOEA [None]
  - HAEMATURIA [None]
  - VOMITING [None]
  - ACCIDENTAL OVERDOSE [None]
  - RECTAL HAEMORRHAGE [None]
